FAERS Safety Report 24407589 (Version 4)
Quarter: 2025Q2

REPORT INFORMATION
  Report Type: Report from Study
  Country: CA (occurrence: CA)
  Receive Date: 20241007
  Receipt Date: 20250624
  Transmission Date: 20250717
  Serious: Yes (Life-Threatening, Other)
  Sender: PFIZER
  Company Number: CA-BRISTOL-MYERS SQUIBB COMPANY-BMS-2020-042391

PATIENT
  Age: 66 Year
  Sex: Male
  Weight: 70 kg

DRUGS (581)
  1. PREVNAR 13 [Suspect]
     Active Substance: STREPTOCOCCUS PNEUMONIAE TYPE 1 CAPSULAR POLYSACCHARIDE DIPHTHERIA CRM197 PROTEIN CONJUGATE ANTIGEN\
     Indication: Immunisation
     Route: 030
  2. PREVNAR 13 [Suspect]
     Active Substance: STREPTOCOCCUS PNEUMONIAE TYPE 1 CAPSULAR POLYSACCHARIDE DIPHTHERIA CRM197 PROTEIN CONJUGATE ANTIGEN\
     Route: 030
  3. PREVNAR 13 [Suspect]
     Active Substance: STREPTOCOCCUS PNEUMONIAE TYPE 1 CAPSULAR POLYSACCHARIDE DIPHTHERIA CRM197 PROTEIN CONJUGATE ANTIGEN\
     Route: 030
  4. PREVNAR 13 [Suspect]
     Active Substance: STREPTOCOCCUS PNEUMONIAE TYPE 1 CAPSULAR POLYSACCHARIDE DIPHTHERIA CRM197 PROTEIN CONJUGATE ANTIGEN\
     Route: 030
  5. PREVNAR 13 [Suspect]
     Active Substance: STREPTOCOCCUS PNEUMONIAE TYPE 1 CAPSULAR POLYSACCHARIDE DIPHTHERIA CRM197 PROTEIN CONJUGATE ANTIGEN\
     Route: 030
  6. PREVNAR 13 [Suspect]
     Active Substance: STREPTOCOCCUS PNEUMONIAE TYPE 1 CAPSULAR POLYSACCHARIDE DIPHTHERIA CRM197 PROTEIN CONJUGATE ANTIGEN\
     Route: 030
  7. PREVNAR 13 [Suspect]
     Active Substance: STREPTOCOCCUS PNEUMONIAE TYPE 1 CAPSULAR POLYSACCHARIDE DIPHTHERIA CRM197 PROTEIN CONJUGATE ANTIGEN\
     Route: 030
  8. PREVNAR 13 [Suspect]
     Active Substance: STREPTOCOCCUS PNEUMONIAE TYPE 1 CAPSULAR POLYSACCHARIDE DIPHTHERIA CRM197 PROTEIN CONJUGATE ANTIGEN\
     Route: 065
  9. PREVNAR 13 [Suspect]
     Active Substance: STREPTOCOCCUS PNEUMONIAE TYPE 1 CAPSULAR POLYSACCHARIDE DIPHTHERIA CRM197 PROTEIN CONJUGATE ANTIGEN\
     Route: 030
  10. PREVNAR 13 [Suspect]
     Active Substance: STREPTOCOCCUS PNEUMONIAE TYPE 1 CAPSULAR POLYSACCHARIDE DIPHTHERIA CRM197 PROTEIN CONJUGATE ANTIGEN\
     Route: 030
  11. PREVNAR 13 [Suspect]
     Active Substance: STREPTOCOCCUS PNEUMONIAE TYPE 1 CAPSULAR POLYSACCHARIDE DIPHTHERIA CRM197 PROTEIN CONJUGATE ANTIGEN\
     Route: 030
  12. PREVNAR 13 [Suspect]
     Active Substance: STREPTOCOCCUS PNEUMONIAE TYPE 1 CAPSULAR POLYSACCHARIDE DIPHTHERIA CRM197 PROTEIN CONJUGATE ANTIGEN\
     Route: 030
  13. PREVNAR 13 [Suspect]
     Active Substance: STREPTOCOCCUS PNEUMONIAE TYPE 1 CAPSULAR POLYSACCHARIDE DIPHTHERIA CRM197 PROTEIN CONJUGATE ANTIGEN\
     Route: 030
  14. PREVNAR 13 [Suspect]
     Active Substance: STREPTOCOCCUS PNEUMONIAE TYPE 1 CAPSULAR POLYSACCHARIDE DIPHTHERIA CRM197 PROTEIN CONJUGATE ANTIGEN\
     Route: 030
  15. PREVNAR 13 [Suspect]
     Active Substance: STREPTOCOCCUS PNEUMONIAE TYPE 1 CAPSULAR POLYSACCHARIDE DIPHTHERIA CRM197 PROTEIN CONJUGATE ANTIGEN\
     Route: 030
  16. PREVNAR 13 [Suspect]
     Active Substance: STREPTOCOCCUS PNEUMONIAE TYPE 1 CAPSULAR POLYSACCHARIDE DIPHTHERIA CRM197 PROTEIN CONJUGATE ANTIGEN\
     Route: 030
  17. PREVNAR 13 [Suspect]
     Active Substance: STREPTOCOCCUS PNEUMONIAE TYPE 1 CAPSULAR POLYSACCHARIDE DIPHTHERIA CRM197 PROTEIN CONJUGATE ANTIGEN\
     Route: 030
  18. PREVNAR 13 [Suspect]
     Active Substance: STREPTOCOCCUS PNEUMONIAE TYPE 1 CAPSULAR POLYSACCHARIDE DIPHTHERIA CRM197 PROTEIN CONJUGATE ANTIGEN\
     Route: 030
  19. PREVNAR 13 [Suspect]
     Active Substance: STREPTOCOCCUS PNEUMONIAE TYPE 1 CAPSULAR POLYSACCHARIDE DIPHTHERIA CRM197 PROTEIN CONJUGATE ANTIGEN\
     Route: 030
  20. PREVNAR 13 [Suspect]
     Active Substance: STREPTOCOCCUS PNEUMONIAE TYPE 1 CAPSULAR POLYSACCHARIDE DIPHTHERIA CRM197 PROTEIN CONJUGATE ANTIGEN\
     Route: 030
  21. PREVNAR 13 [Suspect]
     Active Substance: STREPTOCOCCUS PNEUMONIAE TYPE 1 CAPSULAR POLYSACCHARIDE DIPHTHERIA CRM197 PROTEIN CONJUGATE ANTIGEN\
     Route: 030
  22. PREVNAR 13 [Suspect]
     Active Substance: STREPTOCOCCUS PNEUMONIAE TYPE 1 CAPSULAR POLYSACCHARIDE DIPHTHERIA CRM197 PROTEIN CONJUGATE ANTIGEN\
     Route: 030
  23. PREVNAR 13 [Suspect]
     Active Substance: STREPTOCOCCUS PNEUMONIAE TYPE 1 CAPSULAR POLYSACCHARIDE DIPHTHERIA CRM197 PROTEIN CONJUGATE ANTIGEN\
     Route: 030
  24. PREVNAR 13 [Suspect]
     Active Substance: STREPTOCOCCUS PNEUMONIAE TYPE 1 CAPSULAR POLYSACCHARIDE DIPHTHERIA CRM197 PROTEIN CONJUGATE ANTIGEN\
     Route: 030
  25. PREVNAR 13 [Suspect]
     Active Substance: STREPTOCOCCUS PNEUMONIAE TYPE 1 CAPSULAR POLYSACCHARIDE DIPHTHERIA CRM197 PROTEIN CONJUGATE ANTIGEN\
     Route: 030
  26. PREVNAR 13 [Suspect]
     Active Substance: STREPTOCOCCUS PNEUMONIAE TYPE 1 CAPSULAR POLYSACCHARIDE DIPHTHERIA CRM197 PROTEIN CONJUGATE ANTIGEN\
     Route: 030
  27. PREVNAR 13 [Suspect]
     Active Substance: STREPTOCOCCUS PNEUMONIAE TYPE 1 CAPSULAR POLYSACCHARIDE DIPHTHERIA CRM197 PROTEIN CONJUGATE ANTIGEN\
     Route: 030
  28. PREVNAR 13 [Suspect]
     Active Substance: STREPTOCOCCUS PNEUMONIAE TYPE 1 CAPSULAR POLYSACCHARIDE DIPHTHERIA CRM197 PROTEIN CONJUGATE ANTIGEN\
     Route: 030
  29. PREVNAR 13 [Suspect]
     Active Substance: STREPTOCOCCUS PNEUMONIAE TYPE 1 CAPSULAR POLYSACCHARIDE DIPHTHERIA CRM197 PROTEIN CONJUGATE ANTIGEN\
     Route: 030
  30. PREVNAR 13 [Suspect]
     Active Substance: STREPTOCOCCUS PNEUMONIAE TYPE 1 CAPSULAR POLYSACCHARIDE DIPHTHERIA CRM197 PROTEIN CONJUGATE ANTIGEN\
     Route: 030
  31. PREVNAR 13 [Suspect]
     Active Substance: STREPTOCOCCUS PNEUMONIAE TYPE 1 CAPSULAR POLYSACCHARIDE DIPHTHERIA CRM197 PROTEIN CONJUGATE ANTIGEN\
     Route: 030
  32. PREVNAR 13 [Suspect]
     Active Substance: STREPTOCOCCUS PNEUMONIAE TYPE 1 CAPSULAR POLYSACCHARIDE DIPHTHERIA CRM197 PROTEIN CONJUGATE ANTIGEN\
     Route: 030
  33. PREVNAR 13 [Suspect]
     Active Substance: STREPTOCOCCUS PNEUMONIAE TYPE 1 CAPSULAR POLYSACCHARIDE DIPHTHERIA CRM197 PROTEIN CONJUGATE ANTIGEN\
     Route: 030
  34. PREVNAR 13 [Suspect]
     Active Substance: STREPTOCOCCUS PNEUMONIAE TYPE 1 CAPSULAR POLYSACCHARIDE DIPHTHERIA CRM197 PROTEIN CONJUGATE ANTIGEN\
     Route: 030
  35. PREVNAR 13 [Suspect]
     Active Substance: STREPTOCOCCUS PNEUMONIAE TYPE 1 CAPSULAR POLYSACCHARIDE DIPHTHERIA CRM197 PROTEIN CONJUGATE ANTIGEN\
     Route: 030
  36. PREVNAR 13 [Suspect]
     Active Substance: STREPTOCOCCUS PNEUMONIAE TYPE 1 CAPSULAR POLYSACCHARIDE DIPHTHERIA CRM197 PROTEIN CONJUGATE ANTIGEN\
     Route: 030
  37. PREVNAR 13 [Suspect]
     Active Substance: STREPTOCOCCUS PNEUMONIAE TYPE 1 CAPSULAR POLYSACCHARIDE DIPHTHERIA CRM197 PROTEIN CONJUGATE ANTIGEN\
     Route: 030
  38. PREVNAR 13 [Suspect]
     Active Substance: STREPTOCOCCUS PNEUMONIAE TYPE 1 CAPSULAR POLYSACCHARIDE DIPHTHERIA CRM197 PROTEIN CONJUGATE ANTIGEN\
     Route: 030
  39. PREVNAR 13 [Suspect]
     Active Substance: STREPTOCOCCUS PNEUMONIAE TYPE 1 CAPSULAR POLYSACCHARIDE DIPHTHERIA CRM197 PROTEIN CONJUGATE ANTIGEN\
     Route: 030
  40. PNEUMOCOCCAL 13-VALENT CONJUGATE VACCINE [Suspect]
     Active Substance: PNEUMOCOCCAL 13-VALENT CONJUGATE VACCINE
     Indication: Immunisation
     Route: 030
  41. PNEUMOCOCCAL 13-VALENT CONJUGATE VACCINE [Suspect]
     Active Substance: PNEUMOCOCCAL 13-VALENT CONJUGATE VACCINE
     Route: 030
  42. ELIQUIS [Suspect]
     Active Substance: APIXABAN
     Dosage: 1.0 DOSAGE FORMS; 2 EVERY 1 DAYS
     Route: 065
  43. ELIQUIS [Suspect]
     Active Substance: APIXABAN
     Route: 065
  44. ELIQUIS [Suspect]
     Active Substance: APIXABAN
     Route: 065
  45. ELIQUIS [Suspect]
     Active Substance: APIXABAN
     Dosage: 1 DF, 1X/DAY (1 EVERY 1 DAYS)
     Route: 065
  46. ELIQUIS [Suspect]
     Active Substance: APIXABAN
     Route: 065
  47. ELIQUIS [Suspect]
     Active Substance: APIXABAN
     Route: 065
  48. ELIQUIS [Suspect]
     Active Substance: APIXABAN
     Dosage: 1.0 DOSAGE FORMS, 2X/DAY
     Route: 065
  49. ELIQUIS [Suspect]
     Active Substance: APIXABAN
     Route: 065
  50. ELIQUIS [Suspect]
     Active Substance: APIXABAN
     Dosage: 1.0 DOSAGE FORMS, 2X/DAY
  51. ELIQUIS [Suspect]
     Active Substance: APIXABAN
     Dosage: 1.0 DOSAGE FORMS, 2X/DAY
  52. ELIQUIS [Suspect]
     Active Substance: APIXABAN
  53. ELIQUIS [Suspect]
     Active Substance: APIXABAN
  54. ELIQUIS [Suspect]
     Active Substance: APIXABAN
     Dosage: 1 DF, 2X/DAY
  55. EPINEPHRINE [Suspect]
     Active Substance: EPINEPHRINE
     Indication: Anaphylactic reaction
     Route: 065
  56. EPINEPHRINE [Suspect]
     Active Substance: EPINEPHRINE
     Route: 065
  57. EPINEPHRINE [Suspect]
     Active Substance: EPINEPHRINE
     Route: 065
  58. EPINEPHRINE [Suspect]
     Active Substance: EPINEPHRINE
     Route: 065
  59. EPINEPHRINE [Suspect]
     Active Substance: EPINEPHRINE
     Route: 065
  60. EPINEPHRINE [Suspect]
     Active Substance: EPINEPHRINE
     Route: 065
  61. EPINEPHRINE [Suspect]
     Active Substance: EPINEPHRINE
     Route: 065
  62. EPINEPHRINE [Suspect]
     Active Substance: EPINEPHRINE
     Route: 065
  63. EPINEPHRINE [Suspect]
     Active Substance: EPINEPHRINE
     Route: 065
  64. EPINEPHRINE [Suspect]
     Active Substance: EPINEPHRINE
     Route: 065
  65. EPINEPHRINE [Suspect]
     Active Substance: EPINEPHRINE
     Route: 065
  66. EPINEPHRINE [Suspect]
     Active Substance: EPINEPHRINE
     Route: 065
  67. EPINEPHRINE [Suspect]
     Active Substance: EPINEPHRINE
     Route: 030
  68. ANORO ELLIPTA [Suspect]
     Active Substance: UMECLIDINIUM BROMIDE\VILANTEROL TRIFENATATE
     Dosage: 1.0 DOSAGE FORMS, 1 EVERY 1 DAY
     Route: 055
  69. ANORO ELLIPTA [Suspect]
     Active Substance: UMECLIDINIUM BROMIDE\VILANTEROL TRIFENATATE
     Route: 055
  70. ANORO ELLIPTA [Suspect]
     Active Substance: UMECLIDINIUM BROMIDE\VILANTEROL TRIFENATATE
     Route: 055
  71. APIXABAN [Suspect]
     Active Substance: APIXABAN
     Route: 065
  72. APIXABAN [Suspect]
     Active Substance: APIXABAN
     Route: 065
  73. APIXABAN [Suspect]
     Active Substance: APIXABAN
     Route: 065
  74. APIXABAN [Suspect]
     Active Substance: APIXABAN
     Route: 065
  75. APIXABAN [Suspect]
     Active Substance: APIXABAN
     Route: 065
  76. APIXABAN [Suspect]
     Active Substance: APIXABAN
     Dosage: 1.0 DOSAGE FORMS, 2 EVERY 1 DAYS
     Route: 065
  77. APIXABAN [Suspect]
     Active Substance: APIXABAN
     Dosage: 1.0 DOSAGE FORMS, 2 EVERY 1 DAYS
     Route: 065
  78. APIXABAN [Suspect]
     Active Substance: APIXABAN
     Dosage: 1.0 DOSAGE FORMS, 2 EVERY 1 DAYS
     Route: 065
  79. APIXABAN [Suspect]
     Active Substance: APIXABAN
     Dosage: 1.0 DOSAGE FORMS, 1 EVERY 1 DAYS
     Route: 065
  80. APIXABAN [Suspect]
     Active Substance: APIXABAN
     Route: 065
  81. APIXABAN [Suspect]
     Active Substance: APIXABAN
     Route: 065
  82. APIXABAN [Suspect]
     Active Substance: APIXABAN
     Route: 065
  83. APIXABAN [Suspect]
     Active Substance: APIXABAN
     Dosage: 1 DF, 2X/DAY
  84. BUDESONIDE [Suspect]
     Active Substance: BUDESONIDE
     Route: 055
  85. BUDESONIDE [Suspect]
     Active Substance: BUDESONIDE
     Dosage: 1 DF, 2X/DAY
     Route: 065
  86. BUDESONIDE [Suspect]
     Active Substance: BUDESONIDE
     Dosage: 2.0 DOSAGE FORMS, 1 EVERY 1 DAYS
     Route: 065
  87. BUDESONIDE [Suspect]
     Active Substance: BUDESONIDE
     Route: 055
  88. BUDESONIDE [Suspect]
     Active Substance: BUDESONIDE
     Route: 055
  89. BUDESONIDE [Suspect]
     Active Substance: BUDESONIDE
     Route: 055
  90. BUDESONIDE [Suspect]
     Active Substance: BUDESONIDE
     Dosage: 2 EVERY 1 DAYS
     Route: 055
  91. BUDESONIDE [Suspect]
     Active Substance: BUDESONIDE
     Route: 065
  92. BUDESONIDE [Suspect]
     Active Substance: BUDESONIDE
     Dosage: 2 EVERY 1 DAYS
     Route: 065
  93. BUDESONIDE [Suspect]
     Active Substance: BUDESONIDE
     Dosage: 2 EVERY 1 DAYS
     Route: 055
  94. BUDESONIDE [Suspect]
     Active Substance: BUDESONIDE
     Dosage: 1 DF, 2X/DAY
     Route: 065
  95. BUDESONIDE [Suspect]
     Active Substance: BUDESONIDE
     Dosage: 1 EVERY 1 DAYS
     Route: 065
  96. BUDESONIDE [Suspect]
     Active Substance: BUDESONIDE
     Dosage: 2.0 DOSAGE FORMS, 1 EVERY 1 DAYS
     Route: 065
  97. BUDESONIDE [Suspect]
     Active Substance: BUDESONIDE
     Dosage: 1 DF, 2X/DAY
     Route: 065
  98. BUDESONIDE [Suspect]
     Active Substance: BUDESONIDE
     Route: 065
  99. BUDESONIDE [Suspect]
     Active Substance: BUDESONIDE
     Route: 065
  100. BUDESONIDE [Suspect]
     Active Substance: BUDESONIDE
     Route: 065
  101. BUDESONIDE [Suspect]
     Active Substance: BUDESONIDE
     Route: 065
  102. BUDESONIDE [Suspect]
     Active Substance: BUDESONIDE
     Route: 055
  103. BUDESONIDE [Suspect]
     Active Substance: BUDESONIDE
     Route: 065
  104. BUDESONIDE [Suspect]
     Active Substance: BUDESONIDE
     Route: 065
  105. BUDESONIDE [Suspect]
     Active Substance: BUDESONIDE
     Route: 065
  106. BUDESONIDE [Suspect]
     Active Substance: BUDESONIDE
     Route: 065
  107. BUDESONIDE [Suspect]
     Active Substance: BUDESONIDE
     Route: 055
  108. BUDESONIDE [Suspect]
     Active Substance: BUDESONIDE
     Route: 065
  109. BUDESONIDE [Suspect]
     Active Substance: BUDESONIDE
     Route: 065
  110. BUDESONIDE [Suspect]
     Active Substance: BUDESONIDE
     Route: 065
  111. BUDESONIDE [Suspect]
     Active Substance: BUDESONIDE
     Route: 065
  112. BUDESONIDE [Suspect]
     Active Substance: BUDESONIDE
     Route: 055
  113. BUDESONIDE [Suspect]
     Active Substance: BUDESONIDE
     Route: 065
  114. BUDESONIDE [Suspect]
     Active Substance: BUDESONIDE
     Route: 065
  115. BUDESONIDE [Suspect]
     Active Substance: BUDESONIDE
     Route: 065
  116. BUDESONIDE [Suspect]
     Active Substance: BUDESONIDE
     Route: 065
  117. BUDESONIDE [Suspect]
     Active Substance: BUDESONIDE
     Route: 065
  118. BUDESONIDE [Suspect]
     Active Substance: BUDESONIDE
     Route: 065
  119. BUDESONIDE [Suspect]
     Active Substance: BUDESONIDE
     Route: 065
  120. BUDESONIDE [Suspect]
     Active Substance: BUDESONIDE
     Route: 065
  121. BUDESONIDE [Suspect]
     Active Substance: BUDESONIDE
     Route: 065
  122. BUDESONIDE [Suspect]
     Active Substance: BUDESONIDE
     Route: 065
  123. BUDESONIDE [Suspect]
     Active Substance: BUDESONIDE
     Route: 065
  124. BUDESONIDE [Suspect]
     Active Substance: BUDESONIDE
     Route: 065
  125. BUDESONIDE [Suspect]
     Active Substance: BUDESONIDE
     Route: 065
  126. BUDESONIDE [Suspect]
     Active Substance: BUDESONIDE
     Route: 065
  127. BUDESONIDE [Suspect]
     Active Substance: BUDESONIDE
     Route: 065
  128. BUDESONIDE [Suspect]
     Active Substance: BUDESONIDE
     Route: 065
  129. BUDESONIDE [Suspect]
     Active Substance: BUDESONIDE
     Route: 055
  130. BUDESONIDE [Suspect]
     Active Substance: BUDESONIDE
     Route: 055
  131. BUDESONIDE [Suspect]
     Active Substance: BUDESONIDE
     Route: 055
  132. BUDESONIDE [Suspect]
     Active Substance: BUDESONIDE
     Route: 055
  133. BUDESONIDE [Suspect]
     Active Substance: BUDESONIDE
     Route: 065
  134. BUDESONIDE [Suspect]
     Active Substance: BUDESONIDE
     Route: 055
  135. BUDESONIDE [Suspect]
     Active Substance: BUDESONIDE
     Route: 055
  136. BUDESONIDE [Suspect]
     Active Substance: BUDESONIDE
     Route: 065
  137. BUDESONIDE [Suspect]
     Active Substance: BUDESONIDE
     Route: 055
  138. BUDESONIDE [Suspect]
     Active Substance: BUDESONIDE
     Route: 065
  139. BUDESONIDE [Suspect]
     Active Substance: BUDESONIDE
     Route: 055
  140. BUDESONIDE [Suspect]
     Active Substance: BUDESONIDE
     Route: 065
  141. BUDESONIDE [Suspect]
     Active Substance: BUDESONIDE
     Route: 065
  142. BUDESONIDE [Suspect]
     Active Substance: BUDESONIDE
     Route: 065
  143. BUDESONIDE [Suspect]
     Active Substance: BUDESONIDE
     Route: 065
  144. BUDESONIDE [Suspect]
     Active Substance: BUDESONIDE
     Route: 065
  145. BUDESONIDE [Suspect]
     Active Substance: BUDESONIDE
     Route: 065
  146. BUDESONIDE [Suspect]
     Active Substance: BUDESONIDE
     Route: 065
  147. BUDESONIDE [Suspect]
     Active Substance: BUDESONIDE
     Dosage: 2 EVERY 1 DAY
     Route: 055
  148. BUDESONIDE [Suspect]
     Active Substance: BUDESONIDE
     Route: 065
  149. BUDESONIDE [Suspect]
     Active Substance: BUDESONIDE
     Route: 065
  150. BUDESONIDE [Suspect]
     Active Substance: BUDESONIDE
     Route: 065
  151. BUDESONIDE [Suspect]
     Active Substance: BUDESONIDE
     Route: 065
  152. BUDESONIDE [Suspect]
     Active Substance: BUDESONIDE
     Route: 065
  153. BUDESONIDE [Suspect]
     Active Substance: BUDESONIDE
     Route: 065
  154. BUDESONIDE [Suspect]
     Active Substance: BUDESONIDE
     Route: 055
  155. BUDESONIDE [Suspect]
     Active Substance: BUDESONIDE
     Route: 065
  156. BUDESONIDE [Suspect]
     Active Substance: BUDESONIDE
     Route: 055
  157. BUDESONIDE [Suspect]
     Active Substance: BUDESONIDE
     Route: 065
  158. BUDESONIDE [Suspect]
     Active Substance: BUDESONIDE
     Route: 055
  159. BUDESONIDE [Suspect]
     Active Substance: BUDESONIDE
     Route: 065
  160. BUDESONIDE [Suspect]
     Active Substance: BUDESONIDE
     Route: 055
  161. BUDESONIDE [Suspect]
     Active Substance: BUDESONIDE
     Route: 065
  162. BUDESONIDE [Suspect]
     Active Substance: BUDESONIDE
     Route: 065
  163. BUDESONIDE [Suspect]
     Active Substance: BUDESONIDE
     Route: 055
  164. BUDESONIDE [Suspect]
     Active Substance: BUDESONIDE
     Route: 065
  165. BUDESONIDE [Suspect]
     Active Substance: BUDESONIDE
     Route: 065
  166. BUDESONIDE [Suspect]
     Active Substance: BUDESONIDE
     Route: 065
  167. BUDESONIDE [Suspect]
     Active Substance: BUDESONIDE
     Route: 065
  168. BUDESONIDE [Suspect]
     Active Substance: BUDESONIDE
     Route: 065
  169. BUDESONIDE [Suspect]
     Active Substance: BUDESONIDE
     Route: 065
  170. BUDESONIDE [Suspect]
     Active Substance: BUDESONIDE
     Route: 065
  171. BUDESONIDE [Suspect]
     Active Substance: BUDESONIDE
     Route: 065
  172. BUDESONIDE [Suspect]
     Active Substance: BUDESONIDE
     Route: 065
  173. EPINEPHRINE BITARTRATE [Suspect]
     Active Substance: EPINEPHRINE BITARTRATE
     Indication: Anaphylactic reaction
     Route: 065
  174. EPINEPHRINE HYDROCHLORIDE [Suspect]
     Active Substance: EPINEPHRINE HYDROCHLORIDE
     Indication: Anaphylactic reaction
     Route: 065
  175. EPINEPHRINE HYDROCHLORIDE [Suspect]
     Active Substance: EPINEPHRINE HYDROCHLORIDE
     Route: 065
  176. EPINEPHRINE HYDROCHLORIDE [Suspect]
     Active Substance: EPINEPHRINE HYDROCHLORIDE
     Route: 065
  177. EPINEPHRINE HYDROCHLORIDE [Suspect]
     Active Substance: EPINEPHRINE HYDROCHLORIDE
     Route: 065
  178. EPINEPHRINE HYDROCHLORIDE [Suspect]
     Active Substance: EPINEPHRINE HYDROCHLORIDE
     Route: 065
  179. EPINEPHRINE HYDROCHLORIDE [Suspect]
     Active Substance: EPINEPHRINE HYDROCHLORIDE
     Route: 065
  180. EPINEPHRINE HYDROCHLORIDE [Suspect]
     Active Substance: EPINEPHRINE HYDROCHLORIDE
     Route: 065
  181. EPINEPHRINE HYDROCHLORIDE [Suspect]
     Active Substance: EPINEPHRINE HYDROCHLORIDE
     Route: 065
  182. EPINEPHRINE HYDROCHLORIDE [Suspect]
     Active Substance: EPINEPHRINE HYDROCHLORIDE
     Route: 065
  183. EPINEPHRINE HYDROCHLORIDE [Suspect]
     Active Substance: EPINEPHRINE HYDROCHLORIDE
     Route: 065
  184. EPINEPHRINE HYDROCHLORIDE [Suspect]
     Active Substance: EPINEPHRINE HYDROCHLORIDE
     Route: 065
  185. EPINEPHRINE HYDROCHLORIDE [Suspect]
     Active Substance: EPINEPHRINE HYDROCHLORIDE
     Route: 065
  186. EPINEPHRINE HYDROCHLORIDE [Suspect]
     Active Substance: EPINEPHRINE HYDROCHLORIDE
     Route: 065
  187. EPINEPHRINE HYDROCHLORIDE [Suspect]
     Active Substance: EPINEPHRINE HYDROCHLORIDE
     Route: 065
  188. EPINEPHRINE HYDROCHLORIDE [Suspect]
     Active Substance: EPINEPHRINE HYDROCHLORIDE
     Route: 065
  189. EPINEPHRINE HYDROCHLORIDE [Suspect]
     Active Substance: EPINEPHRINE HYDROCHLORIDE
     Route: 065
  190. EPINEPHRINE HYDROCHLORIDE [Suspect]
     Active Substance: EPINEPHRINE HYDROCHLORIDE
     Route: 065
  191. EPINEPHRINE HYDROCHLORIDE [Suspect]
     Active Substance: EPINEPHRINE HYDROCHLORIDE
     Route: 065
  192. EPINEPHRINE HYDROCHLORIDE [Suspect]
     Active Substance: EPINEPHRINE HYDROCHLORIDE
     Route: 065
  193. EPINEPHRINE HYDROCHLORIDE [Suspect]
     Active Substance: EPINEPHRINE HYDROCHLORIDE
     Route: 065
  194. EPINEPHRINE HYDROCHLORIDE [Suspect]
     Active Substance: EPINEPHRINE HYDROCHLORIDE
     Route: 065
  195. EPINEPHRINE HYDROCHLORIDE [Suspect]
     Active Substance: EPINEPHRINE HYDROCHLORIDE
     Route: 065
  196. EPINEPHRINE HYDROCHLORIDE [Suspect]
     Active Substance: EPINEPHRINE HYDROCHLORIDE
     Route: 065
  197. EPINEPHRINE HYDROCHLORIDE [Suspect]
     Active Substance: EPINEPHRINE HYDROCHLORIDE
     Route: 065
  198. EPINEPHRINE HYDROCHLORIDE [Suspect]
     Active Substance: EPINEPHRINE HYDROCHLORIDE
     Route: 065
  199. EPINEPHRINE BITARTRATE [Suspect]
     Active Substance: EPINEPHRINE BITARTRATE
     Indication: Anaphylactic reaction
     Route: 058
  200. EPINEPHRINE BITARTRATE [Suspect]
     Active Substance: EPINEPHRINE BITARTRATE
     Route: 065
  201. EPINEPHRINE BITARTRATE [Suspect]
     Active Substance: EPINEPHRINE BITARTRATE
     Route: 065
  202. EPINEPHRINE BITARTRATE [Suspect]
     Active Substance: EPINEPHRINE BITARTRATE
     Route: 065
  203. EPINEPHRINE BITARTRATE [Suspect]
     Active Substance: EPINEPHRINE BITARTRATE
     Route: 065
  204. EPINEPHRINE BITARTRATE [Suspect]
     Active Substance: EPINEPHRINE BITARTRATE
     Route: 065
  205. EPINEPHRINE BITARTRATE [Suspect]
     Active Substance: EPINEPHRINE BITARTRATE
     Route: 065
  206. EPINEPHRINE BITARTRATE [Suspect]
     Active Substance: EPINEPHRINE BITARTRATE
     Route: 065
  207. EPINEPHRINE BITARTRATE [Suspect]
     Active Substance: EPINEPHRINE BITARTRATE
     Route: 065
  208. EPINEPHRINE BITARTRATE [Suspect]
     Active Substance: EPINEPHRINE BITARTRATE
     Route: 065
  209. EPINEPHRINE BITARTRATE [Suspect]
     Active Substance: EPINEPHRINE BITARTRATE
     Route: 065
  210. EPINEPHRINE BITARTRATE [Suspect]
     Active Substance: EPINEPHRINE BITARTRATE
     Route: 065
  211. EPINEPHRINE BITARTRATE [Suspect]
     Active Substance: EPINEPHRINE BITARTRATE
     Route: 065
  212. EPINEPHRINE BITARTRATE [Suspect]
     Active Substance: EPINEPHRINE BITARTRATE
     Route: 065
  213. EPINEPHRINE BITARTRATE [Suspect]
     Active Substance: EPINEPHRINE BITARTRATE
     Route: 065
  214. EPINEPHRINE BITARTRATE [Suspect]
     Active Substance: EPINEPHRINE BITARTRATE
     Route: 065
  215. EPINEPHRINE BITARTRATE [Suspect]
     Active Substance: EPINEPHRINE BITARTRATE
     Route: 065
  216. EPINEPHRINE BITARTRATE [Suspect]
     Active Substance: EPINEPHRINE BITARTRATE
     Route: 065
  217. EPINEPHRINE BITARTRATE [Suspect]
     Active Substance: EPINEPHRINE BITARTRATE
     Route: 065
  218. EPINEPHRINE BITARTRATE [Suspect]
     Active Substance: EPINEPHRINE BITARTRATE
     Route: 065
  219. EPINEPHRINE BITARTRATE [Suspect]
     Active Substance: EPINEPHRINE BITARTRATE
     Route: 065
  220. EPINEPHRINE BITARTRATE [Suspect]
     Active Substance: EPINEPHRINE BITARTRATE
     Route: 065
  221. EPINEPHRINE BITARTRATE [Suspect]
     Active Substance: EPINEPHRINE BITARTRATE
     Route: 065
  222. EPINEPHRINE BITARTRATE [Suspect]
     Active Substance: EPINEPHRINE BITARTRATE
     Route: 065
  223. EPINEPHRINE BITARTRATE [Suspect]
     Active Substance: EPINEPHRINE BITARTRATE
     Route: 065
  224. EPINEPHRINE BITARTRATE [Suspect]
     Active Substance: EPINEPHRINE BITARTRATE
     Route: 065
  225. EPINEPHRINE BITARTRATE [Suspect]
     Active Substance: EPINEPHRINE BITARTRATE
     Route: 065
  226. EPINEPHRINE BITARTRATE [Suspect]
     Active Substance: EPINEPHRINE BITARTRATE
     Route: 065
  227. EPINEPHRINE BITARTRATE [Suspect]
     Active Substance: EPINEPHRINE BITARTRATE
     Route: 065
  228. EPINEPHRINE BITARTRATE [Suspect]
     Active Substance: EPINEPHRINE BITARTRATE
     Route: 065
  229. EPINEPHRINE BITARTRATE [Suspect]
     Active Substance: EPINEPHRINE BITARTRATE
     Route: 065
  230. EPINEPHRINE BITARTRATE [Suspect]
     Active Substance: EPINEPHRINE BITARTRATE
     Route: 065
  231. EPINEPHRINE BITARTRATE [Suspect]
     Active Substance: EPINEPHRINE BITARTRATE
     Route: 065
  232. EPINEPHRINE BITARTRATE [Suspect]
     Active Substance: EPINEPHRINE BITARTRATE
     Route: 065
  233. EPINEPHRINE BITARTRATE [Suspect]
     Active Substance: EPINEPHRINE BITARTRATE
     Route: 065
  234. LEVALBUTEROL HYDROCHLORIDE [Suspect]
     Active Substance: LEVALBUTEROL HYDROCHLORIDE
     Route: 065
  235. LEVALBUTEROL HYDROCHLORIDE [Suspect]
     Active Substance: LEVALBUTEROL HYDROCHLORIDE
     Route: 065
  236. LEVALBUTEROL HYDROCHLORIDE [Suspect]
     Active Substance: LEVALBUTEROL HYDROCHLORIDE
     Route: 065
  237. LEVALBUTEROL HYDROCHLORIDE [Suspect]
     Active Substance: LEVALBUTEROL HYDROCHLORIDE
     Route: 065
  238. LEVALBUTEROL HYDROCHLORIDE [Suspect]
     Active Substance: LEVALBUTEROL HYDROCHLORIDE
     Route: 065
  239. LEVALBUTEROL HYDROCHLORIDE [Suspect]
     Active Substance: LEVALBUTEROL HYDROCHLORIDE
     Route: 065
  240. LEVALBUTEROL HYDROCHLORIDE [Suspect]
     Active Substance: LEVALBUTEROL HYDROCHLORIDE
  241. LEVALBUTEROL HYDROCHLORIDE [Suspect]
     Active Substance: LEVALBUTEROL HYDROCHLORIDE
  242. LEVALBUTEROL [Suspect]
     Active Substance: LEVALBUTEROL
     Route: 065
  243. LEVALBUTEROL [Suspect]
     Active Substance: LEVALBUTEROL
     Route: 065
  244. LEVALBUTEROL [Suspect]
     Active Substance: LEVALBUTEROL
     Route: 065
  245. LEVALBUTEROL [Suspect]
     Active Substance: LEVALBUTEROL
     Route: 065
  246. LEVALBUTEROL [Suspect]
     Active Substance: LEVALBUTEROL
     Route: 065
  247. LEVALBUTEROL [Suspect]
     Active Substance: LEVALBUTEROL
     Route: 065
  248. LEVALBUTEROL [Suspect]
     Active Substance: LEVALBUTEROL
     Route: 065
  249. LEVALBUTEROL [Suspect]
     Active Substance: LEVALBUTEROL
     Route: 065
  250. LEVALBUTEROL [Suspect]
     Active Substance: LEVALBUTEROL
     Route: 065
  251. LEVALBUTEROL [Suspect]
     Active Substance: LEVALBUTEROL
  252. MEPOLIZUMAB [Suspect]
     Active Substance: MEPOLIZUMAB
     Indication: Asthma
     Dosage: 100 MG, MONTHLY
     Route: 058
  253. MEPOLIZUMAB [Suspect]
     Active Substance: MEPOLIZUMAB
     Dosage: 100 MG, MONTHLY
     Route: 058
  254. MEPOLIZUMAB [Suspect]
     Active Substance: MEPOLIZUMAB
     Route: 058
  255. MEPOLIZUMAB [Suspect]
     Active Substance: MEPOLIZUMAB
     Route: 058
  256. MEPOLIZUMAB [Suspect]
     Active Substance: MEPOLIZUMAB
     Route: 058
  257. MEPOLIZUMAB [Suspect]
     Active Substance: MEPOLIZUMAB
     Route: 058
  258. MEPOLIZUMAB [Suspect]
     Active Substance: MEPOLIZUMAB
     Route: 058
  259. MEPOLIZUMAB [Suspect]
     Active Substance: MEPOLIZUMAB
     Route: 058
  260. MEPOLIZUMAB [Suspect]
     Active Substance: MEPOLIZUMAB
     Route: 058
  261. MEPOLIZUMAB [Suspect]
     Active Substance: MEPOLIZUMAB
     Dosage: 100 MILLIGRAM, MONTHLY
     Route: 058
  262. NUCALA [Suspect]
     Active Substance: MEPOLIZUMAB
     Indication: Asthma
     Dosage: 100 MG, MONTHLY
     Route: 058
  263. NUCALA [Suspect]
     Active Substance: MEPOLIZUMAB
     Route: 058
  264. NUCALA [Suspect]
     Active Substance: MEPOLIZUMAB
     Route: 065
  265. NUCALA [Suspect]
     Active Substance: MEPOLIZUMAB
     Route: 065
  266. NUCALA [Suspect]
     Active Substance: MEPOLIZUMAB
     Route: 065
  267. NUCALA [Suspect]
     Active Substance: MEPOLIZUMAB
     Route: 065
  268. NUCALA [Suspect]
     Active Substance: MEPOLIZUMAB
     Route: 065
  269. NUCALA [Suspect]
     Active Substance: MEPOLIZUMAB
     Route: 065
  270. NUCALA [Suspect]
     Active Substance: MEPOLIZUMAB
     Route: 065
  271. NUCALA [Suspect]
     Active Substance: MEPOLIZUMAB
     Route: 058
  272. NUCALA [Suspect]
     Active Substance: MEPOLIZUMAB
     Route: 058
  273. NUCALA [Suspect]
     Active Substance: MEPOLIZUMAB
     Route: 058
  274. NUCALA [Suspect]
     Active Substance: MEPOLIZUMAB
     Route: 065
  275. NUCALA [Suspect]
     Active Substance: MEPOLIZUMAB
     Route: 065
  276. NUCALA [Suspect]
     Active Substance: MEPOLIZUMAB
     Route: 058
  277. NUCALA [Suspect]
     Active Substance: MEPOLIZUMAB
     Route: 058
  278. NUCALA [Suspect]
     Active Substance: MEPOLIZUMAB
     Route: 058
  279. NUCALA [Suspect]
     Active Substance: MEPOLIZUMAB
     Route: 058
  280. NUCALA [Suspect]
     Active Substance: MEPOLIZUMAB
     Route: 065
  281. NUCALA [Suspect]
     Active Substance: MEPOLIZUMAB
     Route: 065
  282. NUCALA [Suspect]
     Active Substance: MEPOLIZUMAB
     Route: 058
  283. NUCALA [Suspect]
     Active Substance: MEPOLIZUMAB
     Route: 065
  284. NUCALA [Suspect]
     Active Substance: MEPOLIZUMAB
     Route: 065
  285. NUCALA [Suspect]
     Active Substance: MEPOLIZUMAB
     Route: 058
  286. NUCALA [Suspect]
     Active Substance: MEPOLIZUMAB
     Route: 058
  287. NUCALA [Suspect]
     Active Substance: MEPOLIZUMAB
     Route: 058
  288. NUCALA [Suspect]
     Active Substance: MEPOLIZUMAB
     Route: 048
  289. NUCALA [Suspect]
     Active Substance: MEPOLIZUMAB
     Route: 065
  290. NUCALA [Suspect]
     Active Substance: MEPOLIZUMAB
     Route: 065
  291. NUCALA [Suspect]
     Active Substance: MEPOLIZUMAB
     Route: 065
  292. NUCALA [Suspect]
     Active Substance: MEPOLIZUMAB
     Route: 065
  293. NUCALA [Suspect]
     Active Substance: MEPOLIZUMAB
     Route: 058
  294. NUCALA [Suspect]
     Active Substance: MEPOLIZUMAB
     Dosage: 100MILLIGRAM, MONTHLY
  295. PNEUMOCOCCAL VACCINE POLYVALENT NOS [Suspect]
     Active Substance: PNEUMOCOCCAL VACCINE, POLYVALENT
     Indication: Immunisation
     Route: 030
  296. PNEUMOCOCCAL VACCINE POLYVALENT NOS [Suspect]
     Active Substance: PNEUMOCOCCAL VACCINE, POLYVALENT
     Route: 030
  297. PNEUMOCOCCAL VACCINE POLYVALENT NOS [Suspect]
     Active Substance: PNEUMOCOCCAL VACCINE, POLYVALENT
     Route: 065
  298. PNEUMOCOCCAL VACCINE POLYVALENT NOS [Suspect]
     Active Substance: PNEUMOCOCCAL VACCINE, POLYVALENT
     Route: 065
  299. PNEUMOCOCCAL VACCINE POLYVALENT NOS [Suspect]
     Active Substance: PNEUMOCOCCAL VACCINE, POLYVALENT
     Route: 065
  300. PNEUMOCOCCAL VACCINE POLYVALENT NOS [Suspect]
     Active Substance: PNEUMOCOCCAL VACCINE, POLYVALENT
     Route: 065
  301. PNEUMOCOCCAL VACCINE POLYVALENT NOS [Suspect]
     Active Substance: PNEUMOCOCCAL VACCINE, POLYVALENT
     Route: 065
  302. PNEUMOCOCCAL VACCINE POLYVALENT NOS [Suspect]
     Active Substance: PNEUMOCOCCAL VACCINE, POLYVALENT
     Route: 030
  303. PNEUMOCOCCAL VACCINE POLYVALENT NOS [Suspect]
     Active Substance: PNEUMOCOCCAL VACCINE, POLYVALENT
     Route: 030
  304. PNEUMOCOCCAL VACCINE POLYVALENT NOS [Suspect]
     Active Substance: PNEUMOCOCCAL VACCINE, POLYVALENT
     Route: 030
  305. PNEUMOCOCCAL VACCINE POLYVALENT NOS [Suspect]
     Active Substance: PNEUMOCOCCAL VACCINE, POLYVALENT
     Route: 030
  306. PNEUMOCOCCAL 13-VALENT CONJUGATE VACCINE [Suspect]
     Active Substance: PNEUMOCOCCAL 13-VALENT CONJUGATE VACCINE
     Indication: Immunisation
     Route: 030
  307. PNEUMOCOCCAL 13-VALENT CONJUGATE VACCINE [Suspect]
     Active Substance: PNEUMOCOCCAL 13-VALENT CONJUGATE VACCINE
     Route: 030
  308. PNEUMOCOCCAL 13-VALENT CONJUGATE VACCINE [Suspect]
     Active Substance: PNEUMOCOCCAL 13-VALENT CONJUGATE VACCINE
     Route: 030
  309. PNEUMOCOCCAL 13-VALENT CONJUGATE VACCINE [Suspect]
     Active Substance: PNEUMOCOCCAL 13-VALENT CONJUGATE VACCINE
     Route: 030
  310. PNEUMOCOCCAL 13-VALENT CONJUGATE VACCINE [Suspect]
     Active Substance: PNEUMOCOCCAL 13-VALENT CONJUGATE VACCINE
     Route: 030
  311. PNEUMOCOCCAL 13-VALENT CONJUGATE VACCINE [Suspect]
     Active Substance: PNEUMOCOCCAL 13-VALENT CONJUGATE VACCINE
     Route: 030
  312. PNEUMOCOCCAL 13-VALENT CONJUGATE VACCINE [Suspect]
     Active Substance: PNEUMOCOCCAL 13-VALENT CONJUGATE VACCINE
     Route: 030
  313. PNEUMOCOCCAL 13-VALENT CONJUGATE VACCINE [Suspect]
     Active Substance: PNEUMOCOCCAL 13-VALENT CONJUGATE VACCINE
     Route: 065
  314. PNEUMOCOCCAL 13-VALENT CONJUGATE VACCINE [Suspect]
     Active Substance: PNEUMOCOCCAL 13-VALENT CONJUGATE VACCINE
     Route: 065
  315. PNEUMOCOCCAL 13-VALENT CONJUGATE VACCINE [Suspect]
     Active Substance: PNEUMOCOCCAL 13-VALENT CONJUGATE VACCINE
     Route: 065
  316. PNEUMOCOCCAL 13-VALENT CONJUGATE VACCINE [Suspect]
     Active Substance: PNEUMOCOCCAL 13-VALENT CONJUGATE VACCINE
     Route: 065
  317. PNEUMOCOCCAL 13-VALENT CONJUGATE VACCINE [Suspect]
     Active Substance: PNEUMOCOCCAL 13-VALENT CONJUGATE VACCINE
     Route: 065
  318. PREDNISONE [Suspect]
     Active Substance: PREDNISONE
     Indication: Asthma
     Dosage: 1 EVERY 1 DAYS
     Route: 048
  319. PREDNISONE [Suspect]
     Active Substance: PREDNISONE
     Dosage: 1.0 DOSAGE FORMS, 1 EVERY 1 DAYS
     Route: 048
  320. PREDNISONE [Suspect]
     Active Substance: PREDNISONE
     Dosage: 1.0 DOSAGE FORMS, 1 EVERY 1 DAYS
     Route: 048
  321. PREDNISONE [Suspect]
     Active Substance: PREDNISONE
     Dosage: 1 EVERY 1 DAYS
     Route: 048
  322. PREDNISONE [Suspect]
     Active Substance: PREDNISONE
     Route: 065
  323. PREDNISONE [Suspect]
     Active Substance: PREDNISONE
     Route: 048
  324. PREDNISONE [Suspect]
     Active Substance: PREDNISONE
     Route: 048
  325. PREDNISONE [Suspect]
     Active Substance: PREDNISONE
     Route: 048
  326. PREDNISONE [Suspect]
     Active Substance: PREDNISONE
     Route: 048
  327. PREDNISONE [Suspect]
     Active Substance: PREDNISONE
     Route: 048
  328. PREDNISONE [Suspect]
     Active Substance: PREDNISONE
     Route: 048
  329. PREDNISONE [Suspect]
     Active Substance: PREDNISONE
     Route: 048
  330. PREDNISONE [Suspect]
     Active Substance: PREDNISONE
     Route: 065
  331. PREDNISONE [Suspect]
     Active Substance: PREDNISONE
     Route: 065
  332. PREDNISONE [Suspect]
     Active Substance: PREDNISONE
     Route: 065
  333. PREDNISONE [Suspect]
     Active Substance: PREDNISONE
     Route: 065
  334. PREDNISONE [Suspect]
     Active Substance: PREDNISONE
     Route: 065
  335. PREDNISONE [Suspect]
     Active Substance: PREDNISONE
     Route: 065
  336. PREDNISONE [Suspect]
     Active Substance: PREDNISONE
     Route: 065
  337. ALBUTEROL [Suspect]
     Active Substance: ALBUTEROL
     Route: 055
  338. ALBUTEROL [Suspect]
     Active Substance: ALBUTEROL
     Route: 055
  339. ALBUTEROL [Suspect]
     Active Substance: ALBUTEROL
     Route: 065
  340. ALBUTEROL [Suspect]
     Active Substance: ALBUTEROL
     Route: 065
  341. ALBUTEROL [Suspect]
     Active Substance: ALBUTEROL
     Route: 065
  342. ALBUTEROL [Suspect]
     Active Substance: ALBUTEROL
     Route: 065
  343. ALBUTEROL [Suspect]
     Active Substance: ALBUTEROL
     Route: 065
  344. ALBUTEROL [Suspect]
     Active Substance: ALBUTEROL
     Route: 065
  345. ALBUTEROL [Suspect]
     Active Substance: ALBUTEROL
     Route: 065
  346. ALBUTEROL [Suspect]
     Active Substance: ALBUTEROL
     Route: 055
  347. ALBUTEROL [Suspect]
     Active Substance: ALBUTEROL
     Route: 065
  348. ALBUTEROL [Suspect]
     Active Substance: ALBUTEROL
     Route: 065
  349. ALBUTEROL [Suspect]
     Active Substance: ALBUTEROL
     Route: 065
  350. ALBUTEROL [Suspect]
     Active Substance: ALBUTEROL
     Route: 065
  351. ALBUTEROL [Suspect]
     Active Substance: ALBUTEROL
     Route: 065
  352. ALBUTEROL [Suspect]
     Active Substance: ALBUTEROL
     Route: 065
  353. ALBUTEROL [Suspect]
     Active Substance: ALBUTEROL
     Route: 065
  354. ALBUTEROL [Suspect]
     Active Substance: ALBUTEROL
     Route: 065
  355. ALBUTEROL [Suspect]
     Active Substance: ALBUTEROL
     Route: 065
  356. ALBUTEROL [Suspect]
     Active Substance: ALBUTEROL
     Route: 065
  357. ALBUTEROL [Suspect]
     Active Substance: ALBUTEROL
     Route: 065
  358. ALBUTEROL [Suspect]
     Active Substance: ALBUTEROL
     Route: 065
  359. ALBUTEROL [Suspect]
     Active Substance: ALBUTEROL
     Route: 065
  360. ALBUTEROL [Suspect]
     Active Substance: ALBUTEROL
     Route: 065
  361. ALBUTEROL [Suspect]
     Active Substance: ALBUTEROL
     Route: 065
  362. ALBUTEROL [Suspect]
     Active Substance: ALBUTEROL
     Route: 065
  363. ALBUTEROL [Suspect]
     Active Substance: ALBUTEROL
     Route: 055
  364. ALBUTEROL [Suspect]
     Active Substance: ALBUTEROL
     Route: 065
  365. ALBUTEROL [Suspect]
     Active Substance: ALBUTEROL
     Route: 055
  366. ALBUTEROL [Suspect]
     Active Substance: ALBUTEROL
     Route: 055
  367. ALBUTEROL [Suspect]
     Active Substance: ALBUTEROL
     Route: 065
  368. ALBUTEROL [Suspect]
     Active Substance: ALBUTEROL
     Route: 055
  369. ALBUTEROL [Suspect]
     Active Substance: ALBUTEROL
     Route: 065
  370. ALBUTEROL [Suspect]
     Active Substance: ALBUTEROL
     Route: 055
  371. ALBUTEROL [Suspect]
     Active Substance: ALBUTEROL
     Route: 055
  372. ALBUTEROL [Suspect]
     Active Substance: ALBUTEROL
     Route: 055
  373. ALBUTEROL [Suspect]
     Active Substance: ALBUTEROL
     Route: 055
  374. ALBUTEROL [Suspect]
     Active Substance: ALBUTEROL
     Route: 055
  375. ALBUTEROL [Suspect]
     Active Substance: ALBUTEROL
     Route: 055
  376. ALBUTEROL [Suspect]
     Active Substance: ALBUTEROL
     Route: 065
  377. ALBUTEROL [Suspect]
     Active Substance: ALBUTEROL
     Route: 055
  378. ALBUTEROL [Suspect]
     Active Substance: ALBUTEROL
  379. ALBUTEROL [Suspect]
     Active Substance: ALBUTEROL
  380. ALBUTEROL [Suspect]
     Active Substance: ALBUTEROL
  381. ALBUTEROL [Suspect]
     Active Substance: ALBUTEROL
  382. ALBUTEROL [Suspect]
     Active Substance: ALBUTEROL
  383. ALBUTEROL [Suspect]
     Active Substance: ALBUTEROL
     Route: 065
  384. ALBUTEROL [Suspect]
     Active Substance: ALBUTEROL
     Route: 065
  385. ALBUTEROL [Suspect]
     Active Substance: ALBUTEROL
     Route: 065
  386. ALBUTEROL [Suspect]
     Active Substance: ALBUTEROL
     Route: 065
  387. ALBUTEROL [Suspect]
     Active Substance: ALBUTEROL
     Route: 065
  388. ALBUTEROL [Suspect]
     Active Substance: ALBUTEROL
     Route: 065
  389. ALBUTEROL [Suspect]
     Active Substance: ALBUTEROL
     Route: 065
  390. ALBUTEROL [Suspect]
     Active Substance: ALBUTEROL
     Route: 065
  391. OMALIZUMAB [Suspect]
     Active Substance: OMALIZUMAB
     Route: 048
  392. OMALIZUMAB [Suspect]
     Active Substance: OMALIZUMAB
     Route: 065
  393. OMALIZUMAB [Suspect]
     Active Substance: OMALIZUMAB
     Route: 048
  394. OMALIZUMAB [Suspect]
     Active Substance: OMALIZUMAB
     Route: 048
  395. OMALIZUMAB [Suspect]
     Active Substance: OMALIZUMAB
     Route: 065
  396. OMALIZUMAB [Suspect]
     Active Substance: OMALIZUMAB
     Route: 065
  397. OMALIZUMAB [Suspect]
     Active Substance: OMALIZUMAB
     Route: 065
  398. OMALIZUMAB [Suspect]
     Active Substance: OMALIZUMAB
     Route: 065
  399. OMALIZUMAB [Suspect]
     Active Substance: OMALIZUMAB
     Route: 065
  400. OMALIZUMAB [Suspect]
     Active Substance: OMALIZUMAB
     Route: 065
  401. OMALIZUMAB [Suspect]
     Active Substance: OMALIZUMAB
     Route: 048
  402. OMALIZUMAB [Suspect]
     Active Substance: OMALIZUMAB
     Route: 048
  403. OMALIZUMAB [Suspect]
     Active Substance: OMALIZUMAB
     Route: 065
  404. OMALIZUMAB [Suspect]
     Active Substance: OMALIZUMAB
     Route: 048
  405. OMALIZUMAB [Suspect]
     Active Substance: OMALIZUMAB
     Route: 065
  406. OMALIZUMAB [Suspect]
     Active Substance: OMALIZUMAB
     Route: 065
  407. OMALIZUMAB [Suspect]
     Active Substance: OMALIZUMAB
     Route: 048
  408. OMALIZUMAB [Suspect]
     Active Substance: OMALIZUMAB
     Route: 048
  409. OMALIZUMAB [Suspect]
     Active Substance: OMALIZUMAB
     Route: 065
  410. OMALIZUMAB [Suspect]
     Active Substance: OMALIZUMAB
     Route: 065
  411. OMALIZUMAB [Suspect]
     Active Substance: OMALIZUMAB
     Route: 065
  412. OMALIZUMAB [Suspect]
     Active Substance: OMALIZUMAB
     Route: 065
  413. OMALIZUMAB [Suspect]
     Active Substance: OMALIZUMAB
     Route: 065
  414. OMALIZUMAB [Suspect]
     Active Substance: OMALIZUMAB
     Route: 048
  415. OMALIZUMAB [Suspect]
     Active Substance: OMALIZUMAB
     Route: 048
  416. ALBUTEROL SULFATE [Suspect]
     Active Substance: ALBUTEROL SULFATE
     Route: 055
  417. ALBUTEROL SULFATE [Suspect]
     Active Substance: ALBUTEROL SULFATE
     Route: 065
  418. ALBUTEROL SULFATE [Suspect]
     Active Substance: ALBUTEROL SULFATE
     Route: 065
  419. UMECLIDINIUM [Suspect]
     Active Substance: UMECLIDINIUM
     Route: 065
  420. UMECLIDINIUM [Suspect]
     Active Substance: UMECLIDINIUM
     Route: 065
  421. UMECLIDINIUM [Suspect]
     Active Substance: UMECLIDINIUM
     Route: 065
  422. UMECLIDINIUM [Suspect]
     Active Substance: UMECLIDINIUM
     Route: 065
  423. UMECLIDINIUM [Suspect]
     Active Substance: UMECLIDINIUM
     Route: 065
  424. UMECLIDINIUM [Suspect]
     Active Substance: UMECLIDINIUM
     Route: 065
  425. UMECLIDINIUM [Suspect]
     Active Substance: UMECLIDINIUM
     Route: 065
  426. UMECLIDINIUM [Suspect]
     Active Substance: UMECLIDINIUM
     Route: 065
  427. UMECLIDINIUM [Suspect]
     Active Substance: UMECLIDINIUM
     Dosage: 1.0 DOSAGE FORMS, 1 EVERY 1 DAY
     Route: 065
  428. UMECLIDINIUM [Suspect]
     Active Substance: UMECLIDINIUM
     Dosage: 1.0 DOSAGE FORMS, 1 EVERY 1 DAY
     Route: 065
  429. UMECLIDINIUM [Suspect]
     Active Substance: UMECLIDINIUM
     Dosage: 1.0 DOSAGE FORMS, 1 EVERY 1 DAY
     Route: 065
  430. UMECLIDINIUM [Suspect]
     Active Substance: UMECLIDINIUM
     Dosage: 1.0 DOSAGE FORMS, 1 EVERY 1 DAY
     Route: 065
  431. UMECLIDINIUM [Suspect]
     Active Substance: UMECLIDINIUM
     Route: 065
  432. UMECLIDINIUM [Suspect]
     Active Substance: UMECLIDINIUM
     Route: 065
  433. UMECLIDINIUM [Suspect]
     Active Substance: UMECLIDINIUM
     Route: 065
  434. UMECLIDINIUM [Suspect]
     Active Substance: UMECLIDINIUM
     Route: 065
  435. UMECLIDINIUM [Suspect]
     Active Substance: UMECLIDINIUM
     Route: 065
  436. UMECLIDINIUM [Suspect]
     Active Substance: UMECLIDINIUM
     Route: 065
  437. UMECLIDINIUM [Suspect]
     Active Substance: UMECLIDINIUM
     Route: 065
  438. UMECLIDINIUM [Suspect]
     Active Substance: UMECLIDINIUM
     Route: 065
  439. UMECLIDINIUM [Suspect]
     Active Substance: UMECLIDINIUM
     Route: 065
  440. UMECLIDINIUM [Suspect]
     Active Substance: UMECLIDINIUM
     Route: 065
  441. UMECLIDINIUM [Suspect]
     Active Substance: UMECLIDINIUM
     Route: 065
  442. UMECLIDINIUM [Suspect]
     Active Substance: UMECLIDINIUM
     Route: 065
  443. UMECLIDINIUM [Suspect]
     Active Substance: UMECLIDINIUM
     Route: 065
  444. UMECLIDINIUM [Suspect]
     Active Substance: UMECLIDINIUM
     Route: 065
  445. UMECLIDINIUM [Suspect]
     Active Substance: UMECLIDINIUM
     Route: 065
  446. UMECLIDINIUM [Suspect]
     Active Substance: UMECLIDINIUM
     Route: 065
  447. UMECLIDINIUM [Suspect]
     Active Substance: UMECLIDINIUM
     Route: 065
  448. UMECLIDINIUM [Suspect]
     Active Substance: UMECLIDINIUM
     Route: 065
  449. UMECLIDINIUM [Suspect]
     Active Substance: UMECLIDINIUM
     Route: 065
  450. UMECLIDINIUM [Suspect]
     Active Substance: UMECLIDINIUM
     Route: 065
  451. UMECLIDINIUM [Suspect]
     Active Substance: UMECLIDINIUM
     Route: 065
  452. UMECLIDINIUM [Suspect]
     Active Substance: UMECLIDINIUM
     Route: 065
  453. UMECLIDINIUM [Suspect]
     Active Substance: UMECLIDINIUM
     Route: 065
  454. UMECLIDINIUM [Suspect]
     Active Substance: UMECLIDINIUM
     Route: 065
  455. UMECLIDINIUM [Suspect]
     Active Substance: UMECLIDINIUM
     Route: 065
  456. UMECLIDINIUM [Suspect]
     Active Substance: UMECLIDINIUM
     Route: 065
  457. UMECLIDINIUM [Suspect]
     Active Substance: UMECLIDINIUM
     Route: 065
  458. UMECLIDINIUM BROMIDE [Suspect]
     Active Substance: UMECLIDINIUM BROMIDE
     Dosage: 1 GRAM, 1 EVERY 1 DAYS
     Route: 065
  459. UMECLIDINIUM BROMIDE [Suspect]
     Active Substance: UMECLIDINIUM BROMIDE
     Route: 065
  460. UMECLIDINIUM BROMIDE [Suspect]
     Active Substance: UMECLIDINIUM BROMIDE
     Route: 065
  461. UMECLIDINIUM BROMIDE [Suspect]
     Active Substance: UMECLIDINIUM BROMIDE
     Route: 065
  462. UMECLIDINIUM BROMIDE [Suspect]
     Active Substance: UMECLIDINIUM BROMIDE
     Route: 065
  463. UMECLIDINIUM BROMIDE [Suspect]
     Active Substance: UMECLIDINIUM BROMIDE
     Route: 065
  464. UMECLIDINIUM BROMIDE [Suspect]
     Active Substance: UMECLIDINIUM BROMIDE
     Route: 065
  465. UMECLIDINIUM BROMIDE [Suspect]
     Active Substance: UMECLIDINIUM BROMIDE
     Dosage: 1.0 DOSAGE FORMS, 1 EVERY 1 DAYS
     Route: 065
  466. UMECLIDINIUM BROMIDE [Suspect]
     Active Substance: UMECLIDINIUM BROMIDE
     Dosage: 1.0 DOSAGE FORMS, 1 EVERY 1 DAYS
     Route: 065
  467. UMECLIDINIUM BROMIDE [Suspect]
     Active Substance: UMECLIDINIUM BROMIDE
     Dosage: 1.0 DOSAGE FORMS, 1 EVERY 1 DAYS
     Route: 065
  468. UMECLIDINIUM BROMIDE [Suspect]
     Active Substance: UMECLIDINIUM BROMIDE
     Dosage: 1.0 DOSAGE FORMS, 1 EVERY 1 DAYS
     Route: 065
  469. UMECLIDINIUM BROMIDE [Suspect]
     Active Substance: UMECLIDINIUM BROMIDE
     Dosage: 1.0 DOSAGE FORMS, 1 EVERY 1 DAYS
     Route: 065
  470. UMECLIDINIUM BROMIDE [Suspect]
     Active Substance: UMECLIDINIUM BROMIDE
     Dosage: 1.0 DOSAGE FORMS, 1 EVERY 1 DAYS
     Route: 065
  471. UMECLIDINIUM BROMIDE [Suspect]
     Active Substance: UMECLIDINIUM BROMIDE
     Dosage: 1.0 DOSAGE FORMS, 1 EVERY 1 DAYS
     Route: 065
  472. UMECLIDINIUM BROMIDE [Suspect]
     Active Substance: UMECLIDINIUM BROMIDE
     Dosage: 1.0 DOSAGE FORMS, 1 EVERY 1 DAYS
     Route: 065
  473. UMECLIDINIUM BROMIDE [Suspect]
     Active Substance: UMECLIDINIUM BROMIDE
     Dosage: 1.0 DOSAGE FORMS, 1 EVERY 1 DAYS
     Route: 065
  474. UMECLIDINIUM BROMIDE [Suspect]
     Active Substance: UMECLIDINIUM BROMIDE
     Dosage: 1.0 DOSAGE FORMS, 1 EVERY 1 DAYS
     Route: 065
  475. UMECLIDINIUM BROMIDE [Suspect]
     Active Substance: UMECLIDINIUM BROMIDE
     Dosage: 1.0 DOSAGE FORMS, 1 EVERY 1 DAYS
     Route: 065
  476. UMECLIDINIUM BROMIDE [Suspect]
     Active Substance: UMECLIDINIUM BROMIDE
     Dosage: 1.0 DOSAGE FORMS, 1 EVERY 1 DAYS
     Route: 065
  477. UMECLIDINIUM BROMIDE [Suspect]
     Active Substance: UMECLIDINIUM BROMIDE
     Route: 065
  478. UMECLIDINIUM BROMIDE [Suspect]
     Active Substance: UMECLIDINIUM BROMIDE
     Route: 065
  479. UMECLIDINIUM BROMIDE [Suspect]
     Active Substance: UMECLIDINIUM BROMIDE
     Route: 065
  480. UMECLIDINIUM BROMIDE [Suspect]
     Active Substance: UMECLIDINIUM BROMIDE
     Route: 065
  481. UMECLIDINIUM BROMIDE [Suspect]
     Active Substance: UMECLIDINIUM BROMIDE
     Route: 065
  482. UMECLIDINIUM BROMIDE [Suspect]
     Active Substance: UMECLIDINIUM BROMIDE
     Route: 065
  483. UMECLIDINIUM BROMIDE [Suspect]
     Active Substance: UMECLIDINIUM BROMIDE
     Route: 065
  484. UMECLIDINIUM BROMIDE [Suspect]
     Active Substance: UMECLIDINIUM BROMIDE
     Dosage: 1 GRAM, 1 EVERY 1 DAYS
     Route: 065
  485. UMECLIDINIUM BROMIDE [Suspect]
     Active Substance: UMECLIDINIUM BROMIDE
     Dosage: 1 GRAM, 1 EVERY 1 DAYS
     Route: 065
  486. UMECLIDINIUM BROMIDE [Suspect]
     Active Substance: UMECLIDINIUM BROMIDE
     Route: 065
  487. UMECLIDINIUM BROMIDE [Suspect]
     Active Substance: UMECLIDINIUM BROMIDE
     Route: 065
  488. UMECLIDINIUM BROMIDE [Suspect]
     Active Substance: UMECLIDINIUM BROMIDE
     Route: 065
  489. UMECLIDINIUM BROMIDE [Suspect]
     Active Substance: UMECLIDINIUM BROMIDE
     Route: 065
  490. UMECLIDINIUM BROMIDE [Suspect]
     Active Substance: UMECLIDINIUM BROMIDE
     Route: 065
  491. UMECLIDINIUM BROMIDE [Suspect]
     Active Substance: UMECLIDINIUM BROMIDE
     Route: 065
  492. UMECLIDINIUM BROMIDE [Suspect]
     Active Substance: UMECLIDINIUM BROMIDE
     Route: 065
  493. UMECLIDINIUM BROMIDE [Suspect]
     Active Substance: UMECLIDINIUM BROMIDE
     Route: 065
  494. UMECLIDINIUM BROMIDE [Suspect]
     Active Substance: UMECLIDINIUM BROMIDE
     Route: 065
  495. UMECLIDINIUM BROMIDE [Suspect]
     Active Substance: UMECLIDINIUM BROMIDE
     Route: 065
  496. UMECLIDINIUM BROMIDE [Suspect]
     Active Substance: UMECLIDINIUM BROMIDE
     Route: 065
  497. UMECLIDINIUM BROMIDE [Suspect]
     Active Substance: UMECLIDINIUM BROMIDE
     Route: 065
  498. UMECLIDINIUM BROMIDE [Suspect]
     Active Substance: UMECLIDINIUM BROMIDE
     Route: 065
  499. UMECLIDINIUM BROMIDE [Suspect]
     Active Substance: UMECLIDINIUM BROMIDE
     Route: 065
  500. UMECLIDINIUM BROMIDE [Suspect]
     Active Substance: UMECLIDINIUM BROMIDE
     Route: 065
  501. UMECLIDINIUM BROMIDE [Suspect]
     Active Substance: UMECLIDINIUM BROMIDE
     Route: 065
  502. UMECLIDINIUM BROMIDE [Suspect]
     Active Substance: UMECLIDINIUM BROMIDE
     Route: 065
  503. UMECLIDINIUM BROMIDE [Suspect]
     Active Substance: UMECLIDINIUM BROMIDE
     Route: 065
  504. UMECLIDINIUM BROMIDE [Suspect]
     Active Substance: UMECLIDINIUM BROMIDE
     Route: 065
  505. UMECLIDINIUM BROMIDE [Suspect]
     Active Substance: UMECLIDINIUM BROMIDE
     Route: 065
  506. UMECLIDINIUM BROMIDE [Suspect]
     Active Substance: UMECLIDINIUM BROMIDE
     Route: 065
  507. UMECLIDINIUM BROMIDE [Suspect]
     Active Substance: UMECLIDINIUM BROMIDE
     Route: 065
  508. UMECLIDINIUM BROMIDE [Suspect]
     Active Substance: UMECLIDINIUM BROMIDE
     Route: 065
  509. UMECLIDINIUM BROMIDE [Suspect]
     Active Substance: UMECLIDINIUM BROMIDE
     Route: 065
  510. UMECLIDINIUM BROMIDE [Suspect]
     Active Substance: UMECLIDINIUM BROMIDE
     Route: 065
  511. UMECLIDINIUM BROMIDE [Suspect]
     Active Substance: UMECLIDINIUM BROMIDE
     Route: 065
  512. UMECLIDINIUM BROMIDE [Suspect]
     Active Substance: UMECLIDINIUM BROMIDE
     Route: 065
  513. UMECLIDINIUM BROMIDE [Suspect]
     Active Substance: UMECLIDINIUM BROMIDE
     Route: 065
  514. UMECLIDINIUM BROMIDE [Suspect]
     Active Substance: UMECLIDINIUM BROMIDE
     Route: 065
  515. UMECLIDINIUM BROMIDE [Suspect]
     Active Substance: UMECLIDINIUM BROMIDE
     Route: 065
  516. UMECLIDINIUM BROMIDE [Suspect]
     Active Substance: UMECLIDINIUM BROMIDE
     Route: 065
  517. UMECLIDINIUM BROMIDE [Suspect]
     Active Substance: UMECLIDINIUM BROMIDE
     Route: 065
  518. UMECLIDINIUM BROMIDE [Suspect]
     Active Substance: UMECLIDINIUM BROMIDE
     Route: 065
  519. UMECLIDINIUM BROMIDE [Suspect]
     Active Substance: UMECLIDINIUM BROMIDE
     Route: 065
  520. UMECLIDINIUM BROMIDE [Suspect]
     Active Substance: UMECLIDINIUM BROMIDE
     Route: 065
  521. UMECLIDINIUM BROMIDE [Suspect]
     Active Substance: UMECLIDINIUM BROMIDE
     Route: 065
  522. UMECLIDINIUM BROMIDE [Suspect]
     Active Substance: UMECLIDINIUM BROMIDE
     Route: 065
  523. UMECLIDINIUM BROMIDE [Suspect]
     Active Substance: UMECLIDINIUM BROMIDE
     Route: 065
  524. UMECLIDINIUM BROMIDE [Suspect]
     Active Substance: UMECLIDINIUM BROMIDE
     Route: 065
  525. UMECLIDINIUM BROMIDE [Suspect]
     Active Substance: UMECLIDINIUM BROMIDE
     Route: 065
  526. UMECLIDINIUM BROMIDE [Suspect]
     Active Substance: UMECLIDINIUM BROMIDE
     Route: 065
  527. UMECLIDINIUM BROMIDE [Suspect]
     Active Substance: UMECLIDINIUM BROMIDE
     Route: 065
  528. UMECLIDINIUM BROMIDE [Suspect]
     Active Substance: UMECLIDINIUM BROMIDE
     Dosage: 1.0 DOSAGE FORMS, 1 EVERY 1 DAYS
     Route: 065
  529. UMECLIDINIUM BROMIDE [Suspect]
     Active Substance: UMECLIDINIUM BROMIDE
     Dosage: 1.0 DOSAGE FORMS, 1 EVERY 1 DAYS
     Route: 065
  530. UMECLIDINIUM BROMIDE [Suspect]
     Active Substance: UMECLIDINIUM BROMIDE
     Dosage: 1.0 DOSAGE FORMS, 1 EVERY 1 DAYS
     Route: 065
  531. UMECLIDINIUM BROMIDE [Suspect]
     Active Substance: UMECLIDINIUM BROMIDE
     Route: 065
  532. UMECLIDINIUM BROMIDE [Suspect]
     Active Substance: UMECLIDINIUM BROMIDE
     Route: 065
  533. UMECLIDINIUM BROMIDE [Suspect]
     Active Substance: UMECLIDINIUM BROMIDE
     Route: 065
  534. UMECLIDINIUM BROMIDE [Suspect]
     Active Substance: UMECLIDINIUM BROMIDE
     Route: 065
  535. UMECLIDINIUM BROMIDE [Suspect]
     Active Substance: UMECLIDINIUM BROMIDE
     Route: 065
  536. UMECLIDINIUM BROMIDE [Suspect]
     Active Substance: UMECLIDINIUM BROMIDE
     Route: 065
  537. UMECLIDINIUM BROMIDE [Suspect]
     Active Substance: UMECLIDINIUM BROMIDE
     Route: 065
  538. UMECLIDINIUM BROMIDE [Suspect]
     Active Substance: UMECLIDINIUM BROMIDE
     Route: 065
  539. UMECLIDINIUM BROMIDE [Suspect]
     Active Substance: UMECLIDINIUM BROMIDE
     Route: 065
  540. UMECLIDINIUM BROMIDE [Suspect]
     Active Substance: UMECLIDINIUM BROMIDE
     Route: 065
  541. UMECLIDINIUM BROMIDE [Suspect]
     Active Substance: UMECLIDINIUM BROMIDE
     Dosage: 1.0 GRAM, 1 EVERY 1 DAYS
     Route: 065
  542. UMECLIDINIUM BROMIDE\VILANTEROL TRIFENATATE [Suspect]
     Active Substance: UMECLIDINIUM BROMIDE\VILANTEROL TRIFENATATE
     Dosage: 1.0 DOSAGE FORMS; 1 EVERY 1 DAY
     Route: 065
  543. UMECLIDINIUM BROMIDE\VILANTEROL TRIFENATATE [Suspect]
     Active Substance: UMECLIDINIUM BROMIDE\VILANTEROL TRIFENATATE
     Route: 065
  544. UMECLIDINIUM BROMIDE\VILANTEROL TRIFENATATE [Suspect]
     Active Substance: UMECLIDINIUM BROMIDE\VILANTEROL TRIFENATATE
     Dosage: 1 DF, 1X/DAY (INHALATION)
  545. UMECLIDINIUM BROMIDE\VILANTEROL TRIFENATATE [Suspect]
     Active Substance: UMECLIDINIUM BROMIDE\VILANTEROL TRIFENATATE
  546. UMECLIDINIUM BROMIDE\VILANTEROL TRIFENATATE [Suspect]
     Active Substance: UMECLIDINIUM BROMIDE\VILANTEROL TRIFENATATE
     Route: 065
  547. UMECLIDINIUM BROMIDE\VILANTEROL TRIFENATATE [Suspect]
     Active Substance: UMECLIDINIUM BROMIDE\VILANTEROL TRIFENATATE
     Dosage: 1 G, 1 EVERY 1 DAYS
     Route: 065
  548. UMECLIDINIUM BROMIDE\VILANTEROL TRIFENATATE [Suspect]
     Active Substance: UMECLIDINIUM BROMIDE\VILANTEROL TRIFENATATE
     Route: 065
  549. UMECLIDINIUM BROMIDE\VILANTEROL TRIFENATATE [Suspect]
     Active Substance: UMECLIDINIUM BROMIDE\VILANTEROL TRIFENATATE
  550. XOLAIR [Suspect]
     Active Substance: OMALIZUMAB
     Route: 065
  551. XOLAIR [Suspect]
     Active Substance: OMALIZUMAB
     Route: 048
  552. XOLAIR [Suspect]
     Active Substance: OMALIZUMAB
     Route: 065
  553. UMECLIDINIUM BROMIDE\VILANTEROL TRIFENATATE [Concomitant]
     Active Substance: UMECLIDINIUM BROMIDE\VILANTEROL TRIFENATATE
     Dosage: 1 DF, 1X/DAY
     Route: 065
  554. UMECLIDINIUM BROMIDE\VILANTEROL TRIFENATATE [Concomitant]
     Active Substance: UMECLIDINIUM BROMIDE\VILANTEROL TRIFENATATE
     Route: 065
  555. NUCALA [Concomitant]
     Active Substance: MEPOLIZUMAB
     Indication: Asthma
     Route: 058
  556. ANORO ELLIPTA [Concomitant]
     Active Substance: UMECLIDINIUM BROMIDE\VILANTEROL TRIFENATATE
     Dosage: 1 DF, 1X/DAY, POWDER FOR ORAL INHALATION
  557. EPINEPHRINE BITARTRATE [Concomitant]
     Active Substance: EPINEPHRINE BITARTRATE
     Indication: Anaphylactic reaction
  558. FORMOTEROL FUMARATE [Concomitant]
     Active Substance: FORMOTEROL FUMARATE
     Route: 065
  559. FORMOTEROL FUMARATE [Concomitant]
     Active Substance: FORMOTEROL FUMARATE
     Route: 065
  560. APIXABAN [Concomitant]
     Active Substance: APIXABAN
     Route: 065
  561. APIXABAN [Concomitant]
     Active Substance: APIXABAN
     Route: 065
  562. APIXABAN [Concomitant]
     Active Substance: APIXABAN
     Dosage: 2 DF, 1X/DAY
     Route: 065
  563. APIXABAN [Concomitant]
     Active Substance: APIXABAN
     Dosage: 1 DF, 2X/DAY
     Route: 065
  564. APIXABAN [Concomitant]
     Active Substance: APIXABAN
     Route: 065
  565. APIXABAN [Concomitant]
     Active Substance: APIXABAN
     Dosage: 1 DF, 2X/DAY
     Route: 065
  566. APIXABAN [Concomitant]
     Active Substance: APIXABAN
     Route: 065
  567. APIXABAN [Concomitant]
     Active Substance: APIXABAN
     Dosage: 1 DF, 2X/DAY
     Route: 065
  568. APIXABAN [Concomitant]
     Active Substance: APIXABAN
     Route: 065
  569. APIXABAN [Concomitant]
     Active Substance: APIXABAN
     Route: 065
  570. APIXABAN [Concomitant]
     Active Substance: APIXABAN
     Route: 065
  571. APIXABAN [Concomitant]
     Active Substance: APIXABAN
     Route: 065
  572. SPIRIVA [Concomitant]
     Active Substance: TIOTROPIUM BROMIDE MONOHYDRATE
     Route: 065
  573. SPIRIVA [Concomitant]
     Active Substance: TIOTROPIUM BROMIDE MONOHYDRATE
     Route: 065
  574. SPIRIVA [Concomitant]
     Active Substance: TIOTROPIUM BROMIDE MONOHYDRATE
     Route: 065
  575. SPIRIVA [Concomitant]
     Active Substance: TIOTROPIUM BROMIDE MONOHYDRATE
     Route: 065
  576. RACEPINEPHRINE HYDROCHLORIDE [Concomitant]
     Active Substance: RACEPINEPHRINE HYDROCHLORIDE
     Route: 065
  577. RACEPINEPHRINE HYDROCHLORIDE [Concomitant]
     Active Substance: RACEPINEPHRINE HYDROCHLORIDE
     Route: 065
  578. BUDESONIDE\FORMOTEROL FUMARATE [Concomitant]
     Active Substance: BUDESONIDE\FORMOTEROL FUMARATE
     Route: 065
  579. LEVALBUTEROL [Concomitant]
     Active Substance: LEVALBUTEROL
  580. PNEUMOCOCCAL VACCINE POLYVALENT [Concomitant]
     Active Substance: PNEUMOCOCCAL VACCINE POLYVALENT
     Indication: Immunisation
  581. PNEUMOCOCCAL 7-VALENT CONJUGATE VACCINE (DIPHTHERIA CRM197 PROTEIN) [Concomitant]
     Active Substance: PNEUMOCOCCAL 7-VALENT CONJUGATE VACCINE (DIPHTHERIA CRM197 PROTEIN)
     Indication: Immunisation
     Route: 030

REACTIONS (17)
  - Therapeutic product effect incomplete [Not Recovered/Not Resolved]
  - Drug ineffective [Not Recovered/Not Resolved]
  - Erythema [Not Recovered/Not Resolved]
  - Pruritus [Not Recovered/Not Resolved]
  - Dyspnoea [Not Recovered/Not Resolved]
  - Asthma [Not Recovered/Not Resolved]
  - Bronchopulmonary aspergillosis allergic [Not Recovered/Not Resolved]
  - Chronic obstructive pulmonary disease [Not Recovered/Not Resolved]
  - Factor V Leiden mutation [Not Recovered/Not Resolved]
  - Loss of personal independence in daily activities [Not Recovered/Not Resolved]
  - Multiple allergies [Not Recovered/Not Resolved]
  - Hypertension [Not Recovered/Not Resolved]
  - Dry skin [Not Recovered/Not Resolved]
  - Coagulation factor deficiency [Not Recovered/Not Resolved]
  - Coagulation factor V level abnormal [Not Recovered/Not Resolved]
  - Acquired factor V deficiency [Not Recovered/Not Resolved]
  - Off label use [Unknown]
